FAERS Safety Report 12770974 (Version 1)
Quarter: 2016Q3

REPORT INFORMATION
  Report Type: Spontaneous
  Country: JP (occurrence: JP)
  Receive Date: 20160922
  Receipt Date: 20160922
  Transmission Date: 20161109
  Serious: Yes (Death)
  Sender: FDA-Public Use
  Company Number: JP-PFIZER INC-2016440254

PATIENT
  Age: 88 Year
  Sex: Female

DRUGS (11)
  1. LYRICA [Suspect]
     Active Substance: PREGABALIN
     Indication: HYPOAESTHESIA
     Dosage: 100 MG, DAILY
     Route: 048
     Dates: start: 201609, end: 201609
  2. SENNARIDE [Concomitant]
     Active Substance: SENNOSIDES A AND B
     Dosage: 12 MG, DAILY
  3. MOSAPRIDE [Concomitant]
     Active Substance: MOSAPRIDE
     Dosage: 15 MG, DAILY
  4. IMIDAPRIL [Concomitant]
     Active Substance: IMIDAPRIL
     Dosage: 5 MG, DAILY
  5. DOXAZOSIN [Concomitant]
     Active Substance: DOXAZOSIN\DOXAZOSIN MESYLATE
     Dosage: 1 MG, DAILY
  6. FLUITRAN [Concomitant]
     Active Substance: TRICHLORMETHIAZIDE
     Dosage: 1 MG, DAILY
  7. AMLODIPINE [Concomitant]
     Active Substance: AMLODIPINE BESYLATE
     Dosage: 5 MG, DAILY
  8. TRAMCET [Concomitant]
     Active Substance: ACETAMINOPHEN\TRAMADOL
     Dosage: UNK
  9. GASTER [Concomitant]
     Active Substance: FAMOTIDINE
     Dosage: 10 MG, DAILY
  10. METHYCOBAL [Concomitant]
     Active Substance: METHYLCOBALAMIN
     Dosage: 1.5 MG, DAILY
  11. URSO [Concomitant]
     Active Substance: URSODIOL
     Dosage: 300 MG, DAILY

REACTIONS (10)
  - Pneumonia aspiration [Fatal]
  - Feeding disorder [Unknown]
  - Cough [Unknown]
  - Vomiting [Unknown]
  - Interstitial lung disease [Fatal]
  - Flat affect [Unknown]
  - Somnolence [Unknown]
  - Dizziness [Unknown]
  - Hallucination [Unknown]
  - Asthenia [Unknown]

NARRATIVE: CASE EVENT DATE: 201609
